FAERS Safety Report 7132390-3 (Version None)
Quarter: 2010Q4

REPORT INFORMATION
  Report Type: 
  Country: None (occurrence: None)
  Receive Date: 20101202
  Receipt Date: 20101117
  Transmission Date: 20110411
  Serious: Yes (Life-Threatening)
  Sender: FDA-Public Use
  Company Number: US-ROCHE-737030

PATIENT

DRUGS (1)
  1. XELODA [Suspect]
     Indication: BREAST CANCER
     Dosage: FREQUENCY: 14 DAYS/ 21 DAYS
     Route: 048
     Dates: start: 20100901, end: 20100901

REACTIONS (1)
  - DIHYDROPYRIMIDINE DEHYDROGENASE DEFICIENCY [None]
